FAERS Safety Report 4427585-3 (Version None)
Quarter: 2004Q3

REPORT INFORMATION
  Report Type: 
  Country: None (occurrence: None)
  Receive Date: 20040816
  Receipt Date: 20040816
  Transmission Date: 20050211
  Serious: Yes (Death)
  Sender: FDA-Public Use
  Company Number: None

PATIENT
  Age: 80 Year
  Sex: Male

DRUGS (14)
  1. DURAGESIC [Suspect]
     Indication: BACK PAIN
     Dates: start: 20040729
  2. DURAGESIC [Suspect]
     Indication: THORACIC VERTEBRAL FRACTURE
     Dates: start: 20040729
  3. FOSAMAX [Concomitant]
  4. LISINOPRIL [Concomitant]
  5. PAXIL [Concomitant]
  6. LIPITOR [Concomitant]
  7. AVANDIA [Concomitant]
  8. FEMARA [Concomitant]
  9. ASPIRIN [Concomitant]
  10. VIOXX [Concomitant]
  11. LOPRESSOR [Concomitant]
  12. TOPAMAX [Concomitant]
  13. XANAX [Concomitant]
  14. VICODIN [Concomitant]

REACTIONS (3)
  - DEPRESSED LEVEL OF CONSCIOUSNESS [None]
  - ELECTROCARDIOGRAM ABNORMAL [None]
  - MYOCARDIAL ISCHAEMIA [None]
